FAERS Safety Report 9375513 (Version 3)
Quarter: 2013Q3

REPORT INFORMATION
  Report Type: Spontaneous
  Country: DE (occurrence: DE)
  Receive Date: 20130628
  Receipt Date: 20130711
  Transmission Date: 20140515
  Serious: Yes (Other)
  Sender: FDA-Public Use
  Company Number: DE-TEVA-414926GER

PATIENT
  Age: 18 Year
  Sex: Male
  Weight: 56 kg

DRUGS (2)
  1. MIRTAZAPIN [Suspect]
     Indication: DEPRESSION
     Dosage: 30 MILLIGRAM DAILY; 30 MG FOR NIGHT
     Route: 050
     Dates: start: 20121212, end: 20130426
  2. ORFIRIL SAFT [Suspect]
     Indication: MOOD ALTERED
     Dosage: 6-6-7-7
     Route: 048
     Dates: start: 20130402, end: 20130426

REACTIONS (3)
  - Leukopenia [Not Recovered/Not Resolved]
  - Prothrombin time prolonged [Not Recovered/Not Resolved]
  - Thrombocytopenia [Not Recovered/Not Resolved]
